FAERS Safety Report 17858618 (Version 2)
Quarter: 2020Q2

REPORT INFORMATION
  Report Type: Report from Study
  Country: None (occurrence: US)
  Receive Date: 20200604
  Receipt Date: 20200605
  Transmission Date: 20200714
  Serious: No
  Sender: FDA-Public Use
  Company Number: US-US WORLDMEDS, LLC-USW202001-000108

PATIENT
  Sex: Female

DRUGS (1)
  1. APOKYN [Suspect]
     Active Substance: APOMORPHINE HYDROCHLORIDE
     Indication: PARKINSON^S DISEASE
     Dosage: 10MG/ML 3ML CARTRIDGE; 0.1 ML/DOSE UNDER THE SKIN AS NEEDED FOR OFF EPISODES MAX 3 DOSES/24 HOUR
     Route: 058

REACTIONS (1)
  - Blood pressure fluctuation [Unknown]
